FAERS Safety Report 7221011-7 (Version None)
Quarter: 2011Q1

REPORT INFORMATION
  Report Type: 
  Country: None (occurrence: None)
  Receive Date: 20110103
  Receipt Date: 20101223
  Transmission Date: 20110831
  Serious: Yes (Death, Hospitalization)
  Sender: FDA-Public Use
  Company Number: 2009SP002740

PATIENT
  Age: 52 Year
  Sex: Female

DRUGS (5)
  1. BLINDED ELTROMBOPAG (ELTROMBOPAG) [Suspect]
     Indication: THROMBOCYTOPENIA
     Dosage: QD; PO
     Route: 048
     Dates: start: 20081015
  2. RIBAVIRIN [Suspect]
     Indication: HEPATITIS C
     Dosage: 800 MG; UNK; PO
     Route: 048
  3. ELTROMBOPAG (ELTROMBOPAG) [Suspect]
     Indication: THROMBOCYTOPENIA
     Dosage: (25 MG; QD; PO) (50; UNK; PO)
     Route: 048
     Dates: start: 20081007, end: 20081014
  4. ELTROMBOPAG (ELTROMBOPAG) [Suspect]
     Indication: THROMBOCYTOPENIA
     Dosage: (25 MG; QD; PO) (50; UNK; PO)
     Route: 048
     Dates: start: 20080919, end: 20081014
  5. PEG-INTRON [Suspect]
     Indication: HEPATITIS C
     Dosage: QW;SC
     Route: 058
     Dates: start: 20081014

REACTIONS (8)
  - THROMBOCYTOPENIA [None]
  - ALTERED STATE OF CONSCIOUSNESS [None]
  - HAEMOGLOBIN DECREASED [None]
  - VARICES OESOPHAGEAL [None]
  - LIVER DISORDER [None]
  - SHOCK HAEMORRHAGIC [None]
  - BLOOD GLUCOSE DECREASED [None]
  - GASTROINTESTINAL HAEMORRHAGE [None]
